FAERS Safety Report 5318162-0 (Version None)
Quarter: 2007Q2

REPORT INFORMATION
  Report Type: 
  Country: None (occurrence: None)
  Receive Date: 20070507
  Receipt Date: 20070426
  Transmission Date: 20071010
  Serious: Yes (Other)
  Sender: FDA-Public Use
  Company Number: US-PFIZER INC-2006151427

PATIENT
  Sex: Female
  Weight: 52.6 kg

DRUGS (9)
  1. ZIPRASIDONE HCL [Suspect]
     Indication: BIPOLAR DISORDER
     Route: 048
     Dates: start: 20060612, end: 20061101
  2. ZIPRASIDONE HCL [Suspect]
     Indication: DEPRESSION
  3. ZIPRASIDONE HCL [Suspect]
     Indication: ANOREXIA
  4. EFFEXOR XR [Concomitant]
  5. GABAPENTIN [Concomitant]
  6. CLONAZEPAM [Concomitant]
  7. LITHIUM CARBONATE [Concomitant]
  8. LAMICTAL [Concomitant]
  9. BUPROPION HYDROCHLORIDE [Concomitant]

REACTIONS (2)
  - EXTRAPYRAMIDAL DISORDER [None]
  - POSTURE ABNORMAL [None]
